FAERS Safety Report 14429074 (Version 1)
Quarter: 2018Q1

REPORT INFORMATION
  Report Type: Spontaneous
  Country: US (occurrence: US)
  Receive Date: 20180123
  Receipt Date: 20180123
  Transmission Date: 20180509
  Serious: Yes (Hospitalization)
  Sender: FDA-Public Use
  Company Number: None

PATIENT
  Age: 63 Year
  Sex: Female
  Weight: 84.41 kg

DRUGS (22)
  1. NORVASC [Concomitant]
     Active Substance: AMLODIPINE BESYLATE
  2. IPRATROPIUM-ALBUTEROL [Concomitant]
     Active Substance: ALBUTEROL\IPRATROPIUM
  3. LIPITOR [Concomitant]
     Active Substance: ATORVASTATIN CALCIUM
  4. CYANOCOBALAMIN, VITAMIN B-12 [Concomitant]
  5. ASPIRIN. [Concomitant]
     Active Substance: ASPIRIN
  6. BENZONATATE (TESSALON) [Concomitant]
  7. ROXICODONE [Concomitant]
     Active Substance: OXYCODONE HYDROCHLORIDE
  8. OXYCONTIN [Concomitant]
     Active Substance: OXYCODONE HYDROCHLORIDE
  9. ALBUTEROL HFA INHALER [Concomitant]
  10. MYCOPHENOLATE MOFETIL (CELLCEPT) [Concomitant]
  11. DELTASONE [Concomitant]
     Active Substance: PREDNISONE
  12. ELBASVIR-GRAZOPREVIR [Concomitant]
     Active Substance: ELBASVIR\GRAZOPREVIR
  13. ZEPATIER [Suspect]
     Active Substance: ELBASVIR\GRAZOPREVIR
     Indication: HEPATITIS C
     Dosage: 50-100MG QD ORAL
     Route: 048
     Dates: start: 20170422, end: 20170725
  14. LASIX [Concomitant]
     Active Substance: FUROSEMIDE
  15. NIFEDICAL XL [Concomitant]
     Active Substance: NIFEDIPINE
  16. SYMBICORT [Concomitant]
     Active Substance: BUDESONIDE\FORMOTEROL FUMARATE DIHYDRATE
  17. ZITHROMAX [Concomitant]
     Active Substance: AZITHROMYCIN DIHYDRATE
  18. COLACE [Concomitant]
     Active Substance: DOCUSATE SODIUM
  19. FOLIC ACID/MULTIVIT-MIN/LUTEIN (CENTRUM SILVER) [Concomitant]
  20. LYRICA [Concomitant]
     Active Substance: PREGABALIN
  21. AMBIEN [Concomitant]
     Active Substance: ZOLPIDEM TARTRATE
  22. PRILOSEC [Concomitant]
     Active Substance: OMEPRAZOLE MAGNESIUM

REACTIONS (2)
  - Dyspnoea [None]
  - Chronic obstructive pulmonary disease [None]

NARRATIVE: CASE EVENT DATE: 20170620
